FAERS Safety Report 19564968 (Version 1)
Quarter: 2021Q3

REPORT INFORMATION
  Report Type: Spontaneous
  Country: DE (occurrence: DE)
  Receive Date: 20210716
  Receipt Date: 20210716
  Transmission Date: 20211014
  Serious: Yes (Death, Other)
  Sender: FDA-Public Use
  Company Number: DE-EISAI MEDICAL RESEARCH-EC-2021-096014

PATIENT
  Age: 54 Year
  Sex: Male
  Weight: 64 kg

DRUGS (3)
  1. EVEROLIMUS. [Suspect]
     Active Substance: EVEROLIMUS
     Indication: METASTATIC RENAL CELL CARCINOMA
     Route: 065
     Dates: start: 20180518, end: 201903
  2. KISPLYX [Suspect]
     Active Substance: LENVATINIB
     Indication: METASTATIC RENAL CELL CARCINOMA
     Route: 048
     Dates: start: 20180518, end: 201902
  3. KISPLYX [Suspect]
     Active Substance: LENVATINIB
     Route: 048
     Dates: start: 201902, end: 201903

REACTIONS (8)
  - General physical health deterioration [Recovering/Resolving]
  - Malignant neoplasm progression [Unknown]
  - Arthralgia [Recovering/Resolving]
  - Myalgia [Recovering/Resolving]
  - Decreased appetite [Unknown]
  - Weight decreased [Unknown]
  - Epilepsy [Unknown]
  - Anaemia [Unknown]

NARRATIVE: CASE EVENT DATE: 20180530
